FAERS Safety Report 6924570-4 (Version None)
Quarter: 2010Q3

REPORT INFORMATION
  Report Type: 
  Country: None (occurrence: None)
  Receive Date: 20100816
  Receipt Date: 20100802
  Transmission Date: 20110219
  Serious: Yes (Hospitalization, Other)
  Sender: FDA-Public Use
  Company Number: US-JNJFOC-20100703136

PATIENT
  Sex: Female
  Weight: 81.19 kg

DRUGS (4)
  1. REMICADE [Suspect]
     Indication: RHEUMATOID ARTHRITIS
     Route: 042
  2. REMICADE [Suspect]
     Route: 042
  3. ACETAMINOPHEN [Concomitant]
     Indication: PREMEDICATION
     Route: 065
  4. CLARITIN [Concomitant]
     Indication: PREMEDICATION
     Route: 065

REACTIONS (8)
  - CARDIAC ENZYMES INCREASED [None]
  - CHEST PAIN [None]
  - DYSPNOEA [None]
  - ELECTROCARDIOGRAM ABNORMAL [None]
  - ERYTHEMA [None]
  - HAEMOGLOBIN DECREASED [None]
  - INFUSION RELATED REACTION [None]
  - TROPONIN INCREASED [None]
